FAERS Safety Report 10142123 (Version 1)
Quarter: 2014Q2

REPORT INFORMATION
  Report Type: Spontaneous
  Country: US (occurrence: US)
  Receive Date: 20140429
  Receipt Date: 20140429
  Transmission Date: 20141212
  Serious: No
  Sender: FDA-Public Use
  Company Number: US-009507513-1404USA011743

PATIENT
  Sex: Female

DRUGS (12)
  1. JANUVIA [Suspect]
     Indication: DIABETES MELLITUS
     Dosage: 1 DF, QD. 1 TABLET EACH DAY
     Route: 048
  2. ACETAMINOPHEN (+) CODEINE PHOSPHATE [Concomitant]
  3. PROVENTIL [Concomitant]
  4. BIOTIN [Concomitant]
  5. VOLTAREN [Concomitant]
  6. ADVAIR [Concomitant]
  7. GABAPENTIN [Concomitant]
  8. INSULIN GLARGINE [Concomitant]
  9. NAPROXEN [Concomitant]
  10. NITRO-DUR [Concomitant]
  11. XOPENEX [Concomitant]
  12. ENALAPRIL MALEATE [Concomitant]

REACTIONS (8)
  - Rhinorrhoea [Unknown]
  - Feeling jittery [Unknown]
  - Anger [Unknown]
  - Somnolence [Unknown]
  - Headache [Unknown]
  - Pain in extremity [Unknown]
  - Abdominal pain [Unknown]
  - Diarrhoea [Unknown]
